FAERS Safety Report 8059649-X (Version None)
Quarter: 2012Q1

REPORT INFORMATION
  Report Type: 
  Country: None (occurrence: None)
  Receive Date: 20120120
  Receipt Date: 20120113
  Transmission Date: 20120608
  Serious: Yes (Other)
  Sender: FDA-Public Use
  Company Number: PHHY2012JP003690

PATIENT
  Sex: Male

DRUGS (7)
  1. MECOBALAMIN [Concomitant]
     Dosage: 1.5 MG, UNK
     Route: 048
     Dates: start: 20100426
  2. ALLOPURINOL [Concomitant]
     Dosage: 200 MG, UNK
     Route: 048
     Dates: start: 20100426, end: 20100703
  3. LASIX [Concomitant]
     Dosage: 20 MG, UNK
     Route: 048
     Dates: start: 20100426
  4. JUVELA NICOTINATE [Concomitant]
     Dosage: 600 MG, UNK
     Route: 048
     Dates: start: 20100426
  5. OMEPRAZOLE [Concomitant]
     Dosage: 20 MG, UNK
     Route: 048
     Dates: start: 20100426
  6. TASIGNA [Suspect]
     Indication: CHRONIC MYELOID LEUKAEMIA
     Dosage: 200 MG DAILY
     Route: 048
     Dates: start: 20100426, end: 20100703
  7. PREDNISOLONE [Concomitant]
     Dosage: 10 MG, UNK
     Route: 048
     Dates: start: 20100426

REACTIONS (1)
  - ANAEMIA [None]
